FAERS Safety Report 4735495-7 (Version None)
Quarter: 2005Q3

REPORT INFORMATION
  Report Type: 
  Country: None (occurrence: None)
  Receive Date: 20050803
  Receipt Date: 20050707
  Transmission Date: 20060218
  Serious: Yes (Other)
  Sender: FDA-Public Use
  Company Number: USA050394244

PATIENT
  Age: 65 Year
  Sex: Female

DRUGS (2)
  1. EVISTA [Suspect]
     Indication: OSTEOPOROSIS
     Dates: start: 19980101, end: 20050201
  2. FOSAMAX [Concomitant]

REACTIONS (3)
  - BLOOD PRESSURE INCREASED [None]
  - ENDOMETRIAL CANCER [None]
  - OEDEMA PERIPHERAL [None]
